FAERS Safety Report 12856346 (Version 1)
Quarter: 2016Q4

REPORT INFORMATION
  Report Type: Spontaneous
  Country: US (occurrence: US)
  Receive Date: 20161017
  Receipt Date: 20161017
  Transmission Date: 20170207
  Serious: No
  Sender: FDA-Public Use
  Company Number: None

PATIENT
  Age: 77 Year
  Sex: Female
  Weight: 54.03 kg

DRUGS (1)
  1. TARCEVA [Suspect]
     Active Substance: ERLOTINIB HYDROCHLORIDE
     Indication: PANCREATIC CARCINOMA
     Route: 048
     Dates: start: 20161011, end: 20161016

REACTIONS (5)
  - Pyrexia [None]
  - Fatigue [None]
  - Swelling [None]
  - Diarrhoea [None]
  - Gastrointestinal stoma complication [None]

NARRATIVE: CASE EVENT DATE: 20161016
